FAERS Safety Report 24088578 (Version 2)
Quarter: 2024Q4

REPORT INFORMATION
  Report Type: Spontaneous
  Country: AT (occurrence: AT)
  Receive Date: 20240715
  Receipt Date: 20241113
  Transmission Date: 20250114
  Serious: Yes (Other)
  Sender: SANDOZ
  Company Number: AT-CELLTRION INC.-2024AT015775

PATIENT
  Age: 60 Year
  Sex: Female
  Weight: 80 kg

DRUGS (15)
  1. ADRIACIN [Suspect]
     Active Substance: DOXORUBICIN HYDROCHLORIDE
     Indication: Diffuse large B-cell lymphoma
     Dosage: UNK
     Route: 042
     Dates: start: 20230201, end: 20230517
  2. BENDAMUSTINE [Suspect]
     Active Substance: BENDAMUSTINE
     Indication: Diffuse large B-cell lymphoma
     Dosage: 185.23 MG (BINDING THERAPY)
     Route: 065
     Dates: start: 20231026, end: 20231027
  3. CYCLOPHOSPHAMIDE [Suspect]
     Active Substance: CYCLOPHOSPHAMIDE
     Indication: Diffuse large B-cell lymphoma
     Dosage: 1594.45 MG, DAY 1
     Route: 042
     Dates: start: 20230201, end: 20230517
  4. CYCLOPHOSPHAMIDE [Suspect]
     Active Substance: CYCLOPHOSPHAMIDE
     Dosage: 1599.48 MG; DAY 2
     Route: 042
     Dates: start: 20230201
  5. LENALIDOMIDE [Suspect]
     Active Substance: LENALIDOMIDE
     Indication: Diffuse large B-cell lymphoma
     Dosage: 10 MG
     Route: 065
  6. LENALIDOMIDE [Suspect]
     Active Substance: LENALIDOMIDE
     Dosage: 25 MG, QD
     Route: 048
     Dates: start: 20230201, end: 20230523
  7. POLATUZUMAB VEDOTIN [Suspect]
     Active Substance: POLATUZUMAB VEDOTIN
     Indication: Diffuse large B-cell lymphoma
     Dosage: 147.6 MILLIGRAM (BINDING THERAPY)
     Route: 065
     Dates: start: 20231026
  8. PREDNISOLONE [Suspect]
     Active Substance: PREDNISOLONE
     Indication: Diffuse large B-cell lymphoma
     Dosage: 100 MILLIGRAM, DAY 1-5
     Route: 048
     Dates: start: 20230201, end: 20230517
  9. RITUXIMAB [Suspect]
     Active Substance: RITUXIMAB
     Indication: Diffuse large B-cell lymphoma
     Dosage: 771.79 MG (BINDING THERAPY)
     Route: 065
     Dates: start: 20231026
  10. RITUXIMAB [Suspect]
     Active Substance: RITUXIMAB
     Dosage: 779.74 MILLIGRAM, DAY 1
     Route: 042
     Dates: start: 20230201, end: 20230517
  11. RITUXIMAB [Suspect]
     Active Substance: RITUXIMAB
     Dosage: 797.23 MILLIGRAM, DAY 1
     Route: 042
  12. TAFASITAMAB [Suspect]
     Active Substance: TAFASITAMAB
     Dosage: 1008 MG, QW
     Route: 042
     Dates: start: 20230201, end: 20230517
  13. TAFASITAMAB [Suspect]
     Active Substance: TAFASITAMAB
     Indication: Diffuse large B-cell lymphoma
     Dosage: 1063 MG, QW
     Route: 065
     Dates: start: 20230531
  14. VINCRISTINE [Suspect]
     Active Substance: VINCRISTINE
     Dosage: 2 MILLIGRAM, DAY 1
     Route: 042
  15. VINCRISTINE [Suspect]
     Active Substance: VINCRISTINE
     Indication: Diffuse large B-cell lymphoma
     Dosage: 2 MILLIGRAM,DAY 2
     Route: 042
     Dates: start: 20230201

REACTIONS (2)
  - Lung adenocarcinoma [Recovered/Resolved]
  - Disease progression [Unknown]
